FAERS Safety Report 9471726 (Version 1)
Quarter: 2013Q3

REPORT INFORMATION
  Report Type: Spontaneous
  Country: JP (occurrence: None)
  Receive Date: 20130819
  Receipt Date: 20130819
  Transmission Date: 20140515
  Serious: Yes (Hospitalization, Other)
  Sender: FDA-Public Use
  Company Number: NSR_01213_2013

PATIENT
  Age: 54 Year
  Sex: Male

DRUGS (4)
  1. LAMOTRIGINE [Suspect]
     Indication: BIPOLAR DISORDER
  2. ARIPRAZOLE [Concomitant]
  3. LITHIUM [Concomitant]
  4. SERTRALINE [Concomitant]

REACTIONS (3)
  - Neuroleptic malignant syndrome [None]
  - Extrapyramidal disorder [None]
  - Infection [None]
